FAERS Safety Report 24878581 (Version 2)
Quarter: 2025Q1

REPORT INFORMATION
  Report Type: Report from Study
  Country: US (occurrence: US)
  Receive Date: 20250123
  Receipt Date: 20250226
  Transmission Date: 20250409
  Serious: Yes (Other)
  Sender: UCB
  Company Number: US-UCBSA-2025003680

PATIENT
  Age: 92 Year
  Sex: Female

DRUGS (2)
  1. BRIVARACETAM [Suspect]
     Active Substance: BRIVARACETAM
     Indication: Seizure
     Dosage: 75 MILLIGRAM, 2X/DAY (BID)
  2. BRIVARACETAM [Suspect]
     Active Substance: BRIVARACETAM
     Dosage: 100 MILLIGRAM, 2X/DAY (BID)

REACTIONS (12)
  - Seizure [Not Recovered/Not Resolved]
  - Transient ischaemic attack [Unknown]
  - Cerebral ischaemia [Unknown]
  - Carotid artery stenosis [Unknown]
  - Platelet count decreased [Recovering/Resolving]
  - Hypoaesthesia [Unknown]
  - Hypertension [Unknown]
  - Chronic sinusitis [Unknown]
  - Fall [Unknown]
  - Vascular calcification [Unknown]
  - Sinusitis [Unknown]
  - Arteriosclerosis [Unknown]

NARRATIVE: CASE EVENT DATE: 20231101
